FAERS Safety Report 7680427-5 (Version None)
Quarter: 2011Q3

REPORT INFORMATION
  Report Type: 
  Country: None (occurrence: None)
  Receive Date: 20110812
  Receipt Date: 20110802
  Transmission Date: 20111222
  Serious: Yes (Hospitalization, Other)
  Sender: FDA-Public Use
  Company Number: JP-PFIZER INC-2011083159

PATIENT
  Age: 76 Year
  Sex: Male
  Weight: 65 kg

DRUGS (7)
  1. ASPIRIN [Concomitant]
     Indication: ANGINA PECTORIS
     Dosage: UNK
  2. TIZANIDINE HYDROCHLORIDE [Concomitant]
     Indication: CERVICOBRACHIAL SYNDROME
     Dosage: UNK
  3. LOSARTAN POTASSIUM [Concomitant]
     Indication: HYPERTENSION
     Dosage: UNK
  4. PL GRAN. [Suspect]
     Indication: UPPER RESPIRATORY TRACT INFLAMMATION
     Dosage: 1 G, 3X/DAY
     Route: 048
     Dates: start: 20110208, end: 20110214
  5. LASIX [Concomitant]
     Indication: ANGINA PECTORIS
     Dosage: UNK
  6. PLAVIX [Concomitant]
     Indication: ANGINA PECTORIS
     Dosage: UNK
  7. LIPITOR [Suspect]
     Indication: HYPERCHOLESTEROLAEMIA
     Dosage: 5 MG, UID/QD
     Route: 048
     Dates: start: 20051115, end: 20110214

REACTIONS (5)
  - ASPARTATE AMINOTRANSFERASE INCREASED [None]
  - BLOOD UREA INCREASED [None]
  - ALANINE AMINOTRANSFERASE INCREASED [None]
  - RHABDOMYOLYSIS [None]
  - BLOOD LACTATE DEHYDROGENASE INCREASED [None]
